FAERS Safety Report 12696903 (Version 1)
Quarter: 2016Q3

REPORT INFORMATION
  Report Type: Spontaneous
  Country: US (occurrence: None)
  Receive Date: 20160829
  Receipt Date: 20160829
  Transmission Date: 20161109
  Serious: Yes (Disabling)
  Sender: FDA-Public Use
  Company Number: None

PATIENT
  Age: 39 Year
  Sex: Female
  Weight: 87.09 kg

DRUGS (1)
  1. NEXPLANON [Suspect]
     Active Substance: ETONOGESTREL
     Indication: CONTRACEPTION
     Dosage: IMPLANTED IN ARM GIVEN INTO/UNDER THE SKIN
     Route: 058
     Dates: start: 20150901, end: 20160826

REACTIONS (14)
  - Irritability [None]
  - Palpitations [None]
  - Breast tenderness [None]
  - Mood swings [None]
  - Hyperhidrosis [None]
  - Dry skin [None]
  - Headache [None]
  - Weight increased [None]
  - Musculoskeletal stiffness [None]
  - Menorrhagia [None]
  - Fatigue [None]
  - Dyspnoea [None]
  - Back pain [None]
  - Pain [None]
